FAERS Safety Report 7474057-8 (Version None)
Quarter: 2011Q2

REPORT INFORMATION
  Report Type: 
  Country: None (occurrence: None)
  Receive Date: 20110511
  Receipt Date: 20110208
  Transmission Date: 20111010
  Serious: Yes (Other)
  Sender: FDA-Public Use
  Company Number: PHHY2010MX42265

PATIENT
  Sex: Female

DRUGS (4)
  1. HYDROCHLOROTHIAZIDE [Concomitant]
  2. LEVOTHYROXINE SODIUM [Concomitant]
  3. ZOLEDRONIC ACID [Suspect]
     Indication: OSTEOPOROSIS
     Dosage: 5 MG, UNK
     Route: 042
     Dates: start: 20090903
  4. METOPROLOL SUCCINATE [Concomitant]

REACTIONS (5)
  - RESPIRATORY FAILURE [None]
  - DYSPNOEA [None]
  - BONE PAIN [None]
  - PAIN [None]
  - PYREXIA [None]
